FAERS Safety Report 5224526-6 (Version None)
Quarter: 2007Q1

REPORT INFORMATION
  Report Type: 
  Country: None (occurrence: None)
  Receive Date: 20070130
  Receipt Date: 20070118
  Transmission Date: 20070707
  Serious: Yes (Death)
  Sender: FDA-Public Use
  Company Number: BR-PFIZER INC-2007005515

PATIENT
  Sex: Male

DRUGS (1)
  1. ZYVOX [Suspect]
     Route: 042

REACTIONS (1)
  - DEATH [None]
